FAERS Safety Report 21696012 (Version 1)
Quarter: 2022Q4

REPORT INFORMATION
  Report Type: Spontaneous
  Country: US (occurrence: None)
  Receive Date: 20221206
  Receipt Date: 20221206
  Transmission Date: 20230113
  Serious: Yes (Hospitalization)
  Sender: FDA-Public Use
  Company Number: None

PATIENT
  Age: 88 Year
  Sex: Female
  Weight: 28.89 kg

DRUGS (13)
  1. LETROZOLE [Suspect]
     Active Substance: LETROZOLE
     Indication: Breast cancer female
     Dosage: OTHER FREQUENCY : 3W, 1W OFF;?
     Route: 048
  2. IBRANCE [Suspect]
     Active Substance: PALBOCICLIB
     Indication: Breast cancer female
     Dosage: FREQUENCY : DAILY;?
     Route: 048
  3. AMLODIPINE BESYLATE [Concomitant]
     Active Substance: AMLODIPINE BESYLATE
  4. FERROUS SULFATE [Concomitant]
     Active Substance: FERROUS SULFATE
  5. FISH OIL [Concomitant]
     Active Substance: FISH OIL
  6. FOLIC ACID [Concomitant]
     Active Substance: FOLIC ACID
  7. METOPROLOL TARTRATE [Concomitant]
     Active Substance: METOPROLOL TARTRATE
  8. Multivitamin Adult [Concomitant]
  9. Oscal 500 D-3 [Concomitant]
  10. Therapeutic Multivit/Mineral [Concomitant]
  11. TYLENOL [Concomitant]
     Active Substance: ACETAMINOPHEN
  12. CHOLECALCIFEROL [Concomitant]
     Active Substance: CHOLECALCIFEROL
  13. VITAMIN B12 [Concomitant]
     Active Substance: CYANOCOBALAMIN

REACTIONS (1)
  - Oropharyngeal discomfort [None]
